FAERS Safety Report 10506164 (Version 2)
Quarter: 2014Q4

REPORT INFORMATION
  Report Type: Spontaneous
  Country: JP (occurrence: JP)
  Receive Date: 20141009
  Receipt Date: 20141023
  Transmission Date: 20150528
  Serious: Yes (Other)
  Sender: FDA-Public Use
  Company Number: JP-AMGEN-JPNSP2014077468

PATIENT
  Age: 60 Year
  Sex: Male
  Weight: 75 kg

DRUGS (4)
  1. VECTIBIX [Suspect]
     Active Substance: PANITUMUMAB
     Dosage: 290 MG, Q2WK
     Route: 041
     Dates: start: 20130520, end: 20130603
  2. VECTIBIX [Suspect]
     Active Substance: PANITUMUMAB
     Indication: COLON CANCER
     Dosage: 420 MG, Q2WK
     Route: 041
     Dates: start: 20111116, end: 20130318
  3. IRINOTECAN HYDROCHLORIDE. [Concomitant]
     Active Substance: IRINOTECAN HYDROCHLORIDE
     Indication: COLON CANCER
     Dosage: 170 MG, Q2WEEKS
     Route: 041
     Dates: start: 20111116, end: 20130603
  4. VECTIBIX [Suspect]
     Active Substance: PANITUMUMAB
     Dosage: 360 MG, Q2WK
     Route: 041
     Dates: start: 20130401, end: 20130415

REACTIONS (1)
  - Hypomagnesaemia [Unknown]

NARRATIVE: CASE EVENT DATE: 20120409
